FAERS Safety Report 5765973-3 (Version None)
Quarter: 2008Q2

REPORT INFORMATION
  Report Type: 
  Country: None (occurrence: None)
  Receive Date: 20080611
  Receipt Date: 20080229
  Transmission Date: 20081010
  Serious: No
  Sender: FDA-Public Use
  Company Number: US-BRISTOL-MYERS SQUIBB COMPANY-14097646

PATIENT
  Age: 57 Year
  Sex: Female
  Weight: 61 kg

DRUGS (5)
  1. SINEMET [Suspect]
     Dosage: 1 DOSAGE FORM = 2.5 TABLETS (UNITS NOT MENTIONED).
     Dates: start: 20071201
  2. LOTREL [Concomitant]
  3. HYDROCHLOROTHIAZIDE [Concomitant]
  4. VYTORIN [Concomitant]
  5. AMBIEN CR [Concomitant]

REACTIONS (1)
  - DYSKINESIA [None]
